FAERS Safety Report 12631144 (Version 2)
Quarter: 2016Q3

REPORT INFORMATION
  Report Type: Spontaneous
  Country: US (occurrence: US)
  Receive Date: 20160808
  Receipt Date: 20160808
  Transmission Date: 20161109
  Serious: No
  Sender: FDA-Public Use
  Company Number: US-BEH-2015052463

PATIENT
  Sex: Female
  Weight: 54 kg

DRUGS (34)
  1. LORATADINE. [Concomitant]
     Active Substance: LORATADINE
  2. MUCINEX [Concomitant]
     Active Substance: GUAIFENESIN
  3. GLUCOSAMINE CHONDROITIN [Concomitant]
     Active Substance: CHONDROITIN SULFATE (BOVINE)\GLUCOSAMINE HYDROCHLORIDE
  4. FLONASE [Concomitant]
     Active Substance: FLUTICASONE PROPIONATE
  5. BENZONATATE. [Concomitant]
     Active Substance: BENZONATATE
  6. BRIMONIDINE [Concomitant]
     Active Substance: BRIMONIDINE TARTRATE
  7. ACETAMINOPHEN. [Concomitant]
     Active Substance: ACETAMINOPHEN
  8. EPIPEN [Concomitant]
     Active Substance: EPINEPHRINE
     Indication: ANAPHYLACTIC REACTION
  9. LIBRAX [Concomitant]
     Active Substance: CHLORDIAZEPOXIDE HYDROCHLORIDE\CLIDINIUM BROMIDE
  10. KEFLEX [Concomitant]
     Active Substance: CEPHALEXIN
  11. MONTELUKAST [Concomitant]
     Active Substance: MONTELUKAST SODIUM
  12. ADVAIR DISKUS [Concomitant]
     Active Substance: FLUTICASONE PROPIONATE\SALMETEROL XINAFOATE
  13. MAGNESIUM [Concomitant]
     Active Substance: MAGNESIUM
  14. PRELIEF [Concomitant]
     Active Substance: CALCIUM GLYCEROPHOSPHATE
  15. PYRIDIUM [Concomitant]
     Active Substance: PHENAZOPYRIDINE
  16. RANITIDINE. [Concomitant]
     Active Substance: RANITIDINE
  17. LEVOXYL [Concomitant]
     Active Substance: LEVOTHYROXINE SODIUM
  18. ALBUTEROL. [Concomitant]
     Active Substance: ALBUTEROL
  19. DIPHENHYDRAMINE. [Concomitant]
     Active Substance: DIPHENHYDRAMINE
     Indication: ANAPHYLACTIC REACTION
  20. BIOTIN [Concomitant]
     Active Substance: BIOTIN
  21. DIFLUCAN [Concomitant]
     Active Substance: FLUCONAZOLE
  22. HIZENTRA [Suspect]
     Active Substance: HUMAN IMMUNOGLOBULIN G
     Dosage: 4 GM 20 ML VIAL
     Route: 058
  23. ZYRTEC [Concomitant]
     Active Substance: CETIRIZINE HYDROCHLORIDE
  24. VITAMIN D [Concomitant]
     Active Substance: CHOLECALCIFEROL
  25. MULTIVITAMIN [Concomitant]
     Active Substance: VITAMINS
  26. MEDROL [Concomitant]
     Active Substance: METHYLPREDNISOLONE
  27. ATIVAN [Concomitant]
     Active Substance: LORAZEPAM
  28. LATANOPROST. [Concomitant]
     Active Substance: LATANOPROST
  29. OMEPRAZOLE. [Concomitant]
     Active Substance: OMEPRAZOLE
  30. HIZENTRA [Suspect]
     Active Substance: HUMAN IMMUNOGLOBULIN G
     Indication: IMMUNODEFICIENCY COMMON VARIABLE
     Dosage: 1 GM 5 ML VIAL
     Route: 058
  31. AFRIN [Concomitant]
     Active Substance: OXYMETAZOLINE
  32. PHENAZOPYRIDINE. [Concomitant]
     Active Substance: PHENAZOPYRIDINE
  33. COLACE [Concomitant]
     Active Substance: DOCUSATE SODIUM
  34. PROAIR HFA [Concomitant]
     Active Substance: ALBUTEROL SULFATE

REACTIONS (2)
  - Fatigue [Unknown]
  - Headache [Unknown]
